FAERS Safety Report 25174644 (Version 1)
Quarter: 2025Q2

REPORT INFORMATION
  Report Type: Spontaneous
  Country: FR (occurrence: FR)
  Receive Date: 20250408
  Receipt Date: 20250408
  Transmission Date: 20250717
  Serious: Yes (Hospitalization)
  Sender: SANOFI AVENTIS
  Company Number: None

PATIENT
  Age: 64 Year
  Sex: Male
  Weight: 60.6 kg

DRUGS (5)
  1. LOVENOX [Suspect]
     Active Substance: ENOXAPARIN SODIUM
     Indication: Thrombosis prophylaxis
     Dosage: 4000 IU, QD
     Route: 058
     Dates: start: 20250306, end: 20250318
  2. CLINDAMYCIN HYDROCHLORIDE [Suspect]
     Active Substance: CLINDAMYCIN HYDROCHLORIDE
     Indication: Pneumonia
     Dosage: 600 MG, TID
     Route: 048
     Dates: start: 20250226, end: 20250318
  3. FUNGIZONE [Suspect]
     Active Substance: AMPHOTERICIN B
     Indication: Oropharyngeal candidiasis
     Dosage: 500 MG, TID
     Route: 048
     Dates: start: 20250225, end: 20250318
  4. IOMERON [Suspect]
     Active Substance: IOMEPROL
     Indication: Computerised tomogram abdomen
     Route: 042
     Dates: start: 20250304, end: 20250304
  5. ALBUTEROL [Suspect]
     Active Substance: ALBUTEROL
     Indication: Bronchospasm
     Dosage: 5 MG, TID
     Route: 055
     Dates: start: 20250225, end: 20250318

REACTIONS (1)
  - Rash maculo-papular [Recovering/Resolving]

NARRATIVE: CASE EVENT DATE: 20250313
